FAERS Safety Report 6529905-2 (Version None)
Quarter: 2010Q1

REPORT INFORMATION
  Report Type: 
  Country: None (occurrence: None)
  Receive Date: 20100107
  Receipt Date: 20091229
  Transmission Date: 20100710
  Serious: Yes (Other)
  Sender: FDA-Public Use
  Company Number: B0607481A

PATIENT
  Sex: Male

DRUGS (6)
  1. HYCAMTIN [Suspect]
     Indication: NEUROENDOCRINE CARCINOMA
     Dosage: 1.4MG SINGLE DOSE
     Route: 042
     Dates: start: 20091118, end: 20091118
  2. CISPLATIN [Suspect]
     Indication: NEUROENDOCRINE CARCINOMA
     Dosage: 125MG WEEKLY
     Route: 042
     Dates: start: 20091118, end: 20091118
  3. ALIMTA [Suspect]
     Indication: NEUROENDOCRINE CARCINOMA
     Dosage: 850MG WEEKLY
     Route: 042
     Dates: start: 20091118, end: 20091118
  4. ONDANSETRON [Concomitant]
     Indication: VOMITING
     Dosage: 8MG WEEKLY
     Route: 042
     Dates: start: 20091118, end: 20091118
  5. METHYLPREDNISOLONE [Concomitant]
     Indication: VOMITING
     Dosage: 120MG WEEKLY
     Route: 042
     Dates: start: 20091118, end: 20091118
  6. EMEND [Concomitant]
     Indication: VOMITING
     Dosage: 125MG WEEKLY
     Route: 042
     Dates: start: 20091118, end: 20091118

REACTIONS (3)
  - INAPPROPRIATE SCHEDULE OF DRUG ADMINISTRATION [None]
  - MEDICATION ERROR [None]
  - THROMBOCYTOPENIA [None]
